FAERS Safety Report 8102105-0 (Version None)
Quarter: 2012Q1

REPORT INFORMATION
  Report Type: 
  Country: None (occurrence: None)
  Receive Date: 20120131
  Receipt Date: 20120126
  Transmission Date: 20120608
  Serious: Yes (Hospitalization, Other)
  Sender: FDA-Public Use
  Company Number: CZ-ABBOTT-12P-217-0892344-00

PATIENT
  Sex: Female
  Weight: 70 kg

DRUGS (18)
  1. LEVOTHYROXINE SODIUM [Concomitant]
     Indication: PRODUCT USED FOR UNKNOWN INDICATION
     Dates: start: 20090617
  2. RECOXA [Concomitant]
     Indication: PRODUCT USED FOR UNKNOWN INDICATION
  3. PREDNISONE [Concomitant]
     Indication: PRODUCT USED FOR UNKNOWN INDICATION
     Dates: start: 20090617
  4. METHOTREXATE [Concomitant]
     Indication: PRODUCT USED FOR UNKNOWN INDICATION
     Dates: start: 20090617
  5. NITROFURANTOIN [Concomitant]
     Indication: URINARY TRACT INFECTION
  6. VITAMIN D [Concomitant]
     Indication: PRODUCT USED FOR UNKNOWN INDICATION
  7. HUMIRA [Suspect]
     Dates: start: 20111231
  8. SYNTOSTIGMIN [Concomitant]
     Indication: PRODUCT USED FOR UNKNOWN INDICATION
  9. PARALEN [Concomitant]
     Indication: BODY TEMPERATURE INCREASED
  10. IMUNOR [Suspect]
     Indication: PRODUCT USED FOR UNKNOWN INDICATION
  11. PRESTARIUM NEO COMBI [Concomitant]
     Indication: PRODUCT USED FOR UNKNOWN INDICATION
  12. ISOCHOL [Concomitant]
     Indication: PRODUCT USED FOR UNKNOWN INDICATION
  13. APO-FENO [Concomitant]
     Indication: DYSLIPIDAEMIA
  14. HUMIRA [Suspect]
     Indication: RHEUMATOID ARTHRITIS
     Route: 058
     Dates: start: 20090101
  15. METOPROLOL TARTRATE [Concomitant]
     Indication: PRODUCT USED FOR UNKNOWN INDICATION
     Dates: start: 20090617
  16. FOLIC ACID [Concomitant]
     Indication: PRODUCT USED FOR UNKNOWN INDICATION
     Dates: start: 20090617
  17. LUSOPRESS [Concomitant]
     Indication: PRODUCT USED FOR UNKNOWN INDICATION
  18. PARALEN [Concomitant]
     Indication: PAIN

REACTIONS (22)
  - PRESYNCOPE [None]
  - DIZZINESS [None]
  - PYREXIA [None]
  - CHILLS [None]
  - HEADACHE [None]
  - TONGUE DRY [None]
  - RALES [None]
  - CHEST PAIN [None]
  - OBESITY [None]
  - FATIGUE [None]
  - VARICOSE VEIN [None]
  - ARTHRALGIA [None]
  - DEHYDRATION [None]
  - URINARY TRACT INFECTION [None]
  - MYALGIA [None]
  - BRONCHITIS [None]
  - COUGH [None]
  - THROAT IRRITATION [None]
  - OROPHARYNGEAL PAIN [None]
  - AMAUROSIS [None]
  - DYSURIA [None]
  - TONGUE DISCOLOURATION [None]
